FAERS Safety Report 24336494 (Version 1)
Quarter: 2024Q3

REPORT INFORMATION
  Report Type: Spontaneous
  Country: US (occurrence: US)
  Receive Date: 20240919
  Receipt Date: 20240919
  Transmission Date: 20241016
  Serious: No
  Sender: BRISTOL MYERS SQUIBB
  Company Number: US-BRISTOL-MYERS SQUIBB COMPANY-2024-146622

PATIENT
  Age: 71 Year
  Sex: Female

DRUGS (1)
  1. ZEPOSIA [Suspect]
     Active Substance: OZANIMOD HYDROCHLORIDE
     Indication: Multiple sclerosis
     Dosage: FREQUENCY: DAILY
     Route: 048
     Dates: start: 202406

REACTIONS (4)
  - Multiple sclerosis relapse [Not Recovered/Not Resolved]
  - Arthritis [Not Recovered/Not Resolved]
  - Central nervous system lesion [Unknown]
  - Skin lesion [Unknown]
